FAERS Safety Report 15782345 (Version 1)
Quarter: 2019Q1

REPORT INFORMATION
  Report Type: Spontaneous
  Country: ES (occurrence: ES)
  Receive Date: 20190102
  Receipt Date: 20190102
  Transmission Date: 20190417
  Serious: Yes (Other)
  Sender: FDA-Public Use
  Company Number: ES-MYLANLABS-2018M1017958

PATIENT
  Age: 44 Year
  Sex: Male

DRUGS (3)
  1. COTRIMOXAZOL [Interacting]
     Active Substance: SULFAMETHOXAZOLE\TRIMETHOPRIM
     Indication: ACUTE INTERSTITIAL PNEUMONITIS
     Dosage: 1 DF, Q6H
     Route: 042
     Dates: start: 20171228, end: 20180106
  2. TACROLIMUS. [Suspect]
     Active Substance: TACROLIMUS
     Indication: DERMATOMYOSITIS
     Dosage: 10 MG, BID
     Route: 048
     Dates: start: 201711, end: 20180101
  3. METILPREDNISOLONA                  /00049601/ [Concomitant]
     Active Substance: METHYLPREDNISOLONE
     Indication: DERMATOMYOSITIS
     Dosage: 80 MG, QD
     Route: 042
     Dates: start: 20171227, end: 20180114

REACTIONS (3)
  - Hyperkalaemia [Recovered/Resolved]
  - Labelled drug-drug interaction medication error [Unknown]
  - Metabolic acidosis [Recovered/Resolved]

NARRATIVE: CASE EVENT DATE: 20180101
